FAERS Safety Report 9203563 (Version 1)
Quarter: 2013Q1

REPORT INFORMATION
  Report Type: Spontaneous
  Country: FR (occurrence: None)
  Receive Date: 20130329
  Receipt Date: 20130329
  Transmission Date: 20140127
  Serious: Yes (Hospitalization)
  Sender: FDA-Public Use
  Company Number: SYM-2013-01845

PATIENT
  Age: 81 Year
  Sex: Female

DRUGS (3)
  1. BI-TILDIEM [Suspect]
     Indication: PRODUCT USED FOR UNKNOWN INDICATION
     Route: 048
  2. COMBIGAN [Suspect]
     Indication: PRODUCT USED FOR UNKNOWN INDICATION
     Route: 047
     Dates: start: 20121010, end: 20121010
  3. LUCENTIS (RANIBIZUMAB) [Concomitant]

REACTIONS (4)
  - Blood pressure decreased [None]
  - Malaise [None]
  - Bradycardia [None]
  - Dizziness [None]
